FAERS Safety Report 4553806-2 (Version None)
Quarter: 2005Q1

REPORT INFORMATION
  Report Type: 
  Country: None (occurrence: None)
  Receive Date: 20050113
  Receipt Date: 20050113
  Transmission Date: 20050727
  Serious: Yes (Life-Threatening)
  Sender: FDA-Public Use
  Company Number: None

PATIENT
  Sex: Male
  Weight: 91.173 kg

DRUGS (3)
  1. DILTIAZEM [Suspect]
     Indication: CORONARY ARTERY SURGERY
     Dosage: CD 120 DAILY
  2. DILTIAZEM [Suspect]
     Indication: HYPERTENSION
     Dosage: CD 120 DAILY
  3. DILTIAZEM [Suspect]
     Indication: MYOCARDIAL INFARCTION
     Dosage: CD 120 DAILY

REACTIONS (5)
  - CHEST DISCOMFORT [None]
  - FATIGUE [None]
  - GASTRIC DISORDER [None]
  - PHARMACEUTICAL PRODUCT COMPLAINT [None]
  - SKIN DISCOLOURATION [None]
